FAERS Safety Report 5792677-3 (Version None)
Quarter: 2008Q2

REPORT INFORMATION
  Report Type: 
  Country: None (occurrence: None)
  Receive Date: 20080624
  Receipt Date: 20080609
  Transmission Date: 20081010
  Serious: Yes (Other)
  Sender: FDA-Public Use
  Company Number: 2008S1005761

PATIENT
  Age: 87 Year
  Sex: Female

DRUGS (3)
  1. FLEET PREP KIT 1 [Suspect]
     Indication: COLONOSCOPY
     Dosage: 20 MG; X1; PO
     Route: 048
     Dates: start: 20080609, end: 20080609
  2. ACTONEL [Concomitant]
  3. MULTI-VITAMINS [Concomitant]

REACTIONS (4)
  - ABDOMINAL DISTENSION [None]
  - ANURIA [None]
  - BLADDER SPASM [None]
  - MUSCLE SPASMS [None]
